FAERS Safety Report 10143504 (Version 1)
Quarter: 2014Q2

REPORT INFORMATION
  Report Type: Spontaneous
  Country: US (occurrence: US)
  Receive Date: 20140430
  Receipt Date: 20140430
  Transmission Date: 20141212
  Serious: No
  Sender: FDA-Public Use
  Company Number: US-PFIZER INC-2014114435

PATIENT
  Age: 57 Year
  Sex: Male

DRUGS (9)
  1. ALDACTONE [Suspect]
     Dosage: UNK
  2. GLIPIZIDE [Suspect]
     Dosage: UNK
  3. BENAZEPRIL [Suspect]
     Dosage: UNK
  4. COREG [Suspect]
     Dosage: UNK
  5. WARFARIN [Suspect]
     Dosage: UNK
  6. CRESTOR [Suspect]
     Dosage: UNK
  7. LARIX [Suspect]
     Dosage: UNK
  8. LANTUS [Suspect]
     Dosage: UNK
  9. LOSARTAN [Suspect]
     Dosage: UNK

REACTIONS (1)
  - Drug hypersensitivity [Unknown]
